FAERS Safety Report 9131191 (Version 1)
Quarter: 2013Q1

REPORT INFORMATION
  Report Type: Spontaneous
  Country: BR (occurrence: BR)
  Receive Date: 20130301
  Receipt Date: 20130301
  Transmission Date: 20140127
  Serious: Yes (Hospitalization)
  Sender: FDA-Public Use
  Company Number: BR-AMGEN-BRASP2013014029

PATIENT
  Age: 60 Year
  Sex: Female
  Weight: 54 kg

DRUGS (3)
  1. ENBREL [Suspect]
     Indication: RHEUMATOID ARTHRITIS
     Dosage: 50 MG, ONCE A WEEK
     Dates: start: 2012, end: 20121020
  2. CAPTOPRIL [Concomitant]
     Indication: BLOOD PRESSURE INCREASED
     Dosage: UNSPECIFIED DOSE, TWICE A DAY
  3. HYDROCHLORZIDE [Concomitant]
     Indication: BLOOD PRESSURE INCREASED
     Dosage: UNSPECIFIED DOSE, ONCE A DAY

REACTIONS (8)
  - Erythema [Unknown]
  - Blister [Unknown]
  - Wound [Unknown]
  - Malaise [Unknown]
  - Local swelling [Not Recovered/Not Resolved]
  - Burning sensation [Not Recovered/Not Resolved]
  - Inflammation [Not Recovered/Not Resolved]
  - Skin atrophy [Not Recovered/Not Resolved]
